FAERS Safety Report 15004846 (Version 8)
Quarter: 2018Q4

REPORT INFORMATION
  Report Type: Report from Study
  Country: ID (occurrence: ID)
  Receive Date: 20180613
  Receipt Date: 20181206
  Transmission Date: 20190204
  Serious: Yes (Death, Hospitalization, Other)
  Sender: FDA-Public Use
  Company Number: ID-BAYER-2018-107790

PATIENT
  Age: 38 Year
  Sex: Male

DRUGS (2)
  1. NEXAVAR [Suspect]
     Active Substance: SORAFENIB
     Indication: RENAL CELL CARCINOMA
     Dosage: 800 MG DAILY
     Route: 048
     Dates: start: 2018, end: 201810
  2. NEXAVAR [Suspect]
     Active Substance: SORAFENIB
     Indication: RENAL CELL CARCINOMA
     Dosage: UNK
     Route: 048

REACTIONS (18)
  - Metastases to liver [Fatal]
  - Metastases to lung [Fatal]
  - Diarrhoea [Recovering/Resolving]
  - Decubitus ulcer [Recovering/Resolving]
  - Decreased appetite [Not Recovered/Not Resolved]
  - Cancer pain [Recovered/Resolved with Sequelae]
  - Bed rest [Recovering/Resolving]
  - Decreased appetite [Recovering/Resolving]
  - Weight decreased [Not Recovered/Not Resolved]
  - Renal cell carcinoma [Fatal]
  - Metastases to bone [None]
  - Dyspnoea [Fatal]
  - Abdominal rigidity [Recovering/Resolving]
  - Metastases to lung [Recovered/Resolved with Sequelae]
  - Decubitus ulcer [Recovering/Resolving]
  - Haemoglobin decreased [Recovered/Resolved]
  - Contusion [Recovering/Resolving]
  - Abdominal pain [Recovering/Resolving]

NARRATIVE: CASE EVENT DATE: 201804
